FAERS Safety Report 12139130 (Version 1)
Quarter: 2016Q1

REPORT INFORMATION
  Report Type: Report from Study
  Country: CA (occurrence: CA)
  Receive Date: 20160302
  Receipt Date: 20160302
  Transmission Date: 20160526
  Serious: Yes (Other)
  Sender: FDA-Public Use
  Company Number: CA-AMGEN-CANSL2016023990

PATIENT
  Age: 82 Year
  Sex: Female
  Weight: 74.83 kg

DRUGS (21)
  1. FOLIC ACID. [Concomitant]
     Active Substance: FOLIC ACID
     Dosage: 5 MG, 6/7 DAYS A WEEK
  2. METFORMIN [Concomitant]
     Active Substance: METFORMIN HYDROCHLORIDE
     Dosage: 250 MG, BID
  3. VOLTAREN [Concomitant]
     Active Substance: DICLOFENAC SODIUM
     Dosage: UNK
  4. LOSARTAN. [Concomitant]
     Active Substance: LOSARTAN
     Dosage: 100 MG, QD
  5. LASIX [Concomitant]
     Active Substance: FUROSEMIDE
     Dosage: 60 MG, QD
  6. ELTROXIN [Concomitant]
     Active Substance: LEVOTHYROXINE
     Dosage: 0.1 MG, QD
  7. VITAMIN D [Concomitant]
     Active Substance: CHOLECALCIFEROL
     Dosage: 1000 IU, UNK
  8. METHOTREXATE [Concomitant]
     Active Substance: METHOTREXATE
     Dosage: 12.5 MG, QWK
  9. DIGOXIN. [Concomitant]
     Active Substance: DIGOXIN
     Dosage: 0.125 MG, UNK
  10. ASPIRIN                            /00002701/ [Concomitant]
     Active Substance: ASPIRIN
     Dosage: 81 MG, QD
  11. NITROGLYCERIN. [Concomitant]
     Active Substance: NITROGLYCERIN
     Dosage: UNK
  12. ENBREL [Suspect]
     Active Substance: ETANERCEPT
     Indication: RHEUMATOID ARTHRITIS
     Dosage: 50 MG, UNK
     Route: 065
     Dates: start: 20140328
  13. CIPRALEX [Concomitant]
     Active Substance: ESCITALOPRAM OXALATE
     Dosage: 20 MG, UNK
  14. CRESTOR [Concomitant]
     Active Substance: ROSUVASTATIN CALCIUM
     Dosage: 10 MG, QD (NIGHTLY)
  15. RABEPRAZOLE [Concomitant]
     Active Substance: RABEPRAZOLE
     Dosage: 20 MG, QD
  16. MIRTAZAPINE. [Concomitant]
     Active Substance: MIRTAZAPINE
     Dosage: 15 MG, QHS
  17. NITROGLYCERIN. [Concomitant]
     Active Substance: NITROGLYCERIN
     Dosage: SPRAY AS NEEDED
  18. INH [Concomitant]
     Active Substance: ISONIAZID
     Dosage: UNK
     Dates: end: 201406
  19. TYLENOL WITH CODEINE [Concomitant]
     Active Substance: ACETAMINOPHEN\CODEINE PHOSPHATE
     Dosage: TWO TO THREE TABLETS A DAY
  20. COREG [Concomitant]
     Active Substance: CARVEDILOL
     Dosage: 6.25 MG, TID
  21. GABAPENTIN. [Concomitant]
     Active Substance: GABAPENTIN
     Dosage: 200 MG, QHS

REACTIONS (7)
  - Joint swelling [Unknown]
  - Joint effusion [Unknown]
  - Oedema peripheral [Unknown]
  - Macular degeneration [Unknown]
  - Arthralgia [Unknown]
  - Osteoarthritis [Unknown]
  - Sciatica [Unknown]

NARRATIVE: CASE EVENT DATE: 20160217
